FAERS Safety Report 7646533-6 (Version None)
Quarter: 2011Q3

REPORT INFORMATION
  Report Type: 
  Country: None (occurrence: None)
  Receive Date: 20110725
  Receipt Date: 20110707
  Transmission Date: 20111222
  Serious: Yes (Other)
  Sender: FDA-Public Use
  Company Number: JHP201100356

PATIENT
  Age: 20 Year
  Sex: Male

DRUGS (13)
  1. DANTROLENE SODIUM [Suspect]
     Indication: HYPERTHERMIA MALIGNANT
     Dosage: 1750 MG, TOTAL, INTRAVENOUS
     Route: 042
  2. MORPHINE [Concomitant]
  3. DESFLURANE [Concomitant]
  4. ROCURONIUM BROMIDE [Concomitant]
  5. FENTANYL [Concomitant]
  6. NITROUS OXIDE W/ OXYGEN [Concomitant]
  7. MANNITOL [Concomitant]
  8. BICARBONATE (SODIUM BICARBONATE) [Concomitant]
  9. MIDAZOLAM (MIDAZOLAM HYDRCHLORIDE) [Concomitant]
  10. SUCCINYLCHOLINE CHLORIDE [Concomitant]
  11. LASIX [Concomitant]
  12. DEXTROSE 5% [Concomitant]
  13. INSULIN (INSULIN) [Concomitant]

REACTIONS (3)
  - HYPERKALAEMIA [None]
  - RESPIRATORY FAILURE [None]
  - RENAL IMPAIRMENT [None]
